FAERS Safety Report 6517936-8 (Version None)
Quarter: 2009Q4

REPORT INFORMATION
  Report Type: 
  Country: None (occurrence: None)
  Receive Date: 20091218
  Receipt Date: 20091201
  Transmission Date: 20100525
  Serious: Yes (Hospitalization)
  Sender: FDA-Public Use
  Company Number: 2009018625

PATIENT
  Age: 68 Year
  Sex: Male
  Weight: 77 kg

DRUGS (9)
  1. TREANDA [Suspect]
     Indication: B-CELL LYMPHOMA
     Dosage: INTRAVENOUS
     Route: 042
     Dates: start: 20090812, end: 20090923
  2. BACTRIM [Suspect]
     Dosage: 1 IN 1 D), ORAL
     Route: 048
     Dates: start: 20090701, end: 20091021
  3. VALACYCLOVIR [Suspect]
     Dosage: 1000 MG (500 MG, 1 IN 1 D)
     Dates: start: 20090930, end: 20091021
  4. OMEPRAZOLE [Suspect]
     Dosage: 20 MG (20 MG, UID/QD)
     Dates: end: 20091021
  5. GRANOCYTE 34 (LENOGRASTIM) [Suspect]
     Dosage: SEE IMAGE
     Dates: start: 20090817, end: 20090826
  6. GRANOCYTE 34 (LENOGRASTIM) [Suspect]
     Dosage: SEE IMAGE
     Dates: start: 20090907, end: 20090916
  7. GRANOCYTE 34 (LENOGRASTIM) [Suspect]
     Dosage: SEE IMAGE
     Dates: start: 20090927, end: 20091006
  8. EPREX [Suspect]
     Dosage: 40000 DOSAGE FORMS
     Dates: start: 20090813
  9. PREVISCAN (FLUINDIONE) [Suspect]

REACTIONS (2)
  - CYTOLYTIC HEPATITIS [None]
  - HEPATITIS CHOLESTATIC [None]
